FAERS Safety Report 16277690 (Version 2)
Quarter: 2019Q2

REPORT INFORMATION
  Report Type: Report from Study
  Country: US (occurrence: US)
  Receive Date: 20190506
  Receipt Date: 20190528
  Transmission Date: 20190711
  Serious: Yes (Other)
  Sender: FDA-Public Use
  Company Number: US-PFIZER INC-2019067453

PATIENT
  Age: 60 Year
  Sex: Female

DRUGS (1)
  1. IBRANCE [Suspect]
     Active Substance: PALBOCICLIB
     Indication: BREAST CANCER FEMALE
     Dosage: 125 MG, CYCLIC (DAILY, 21 DAYS OF 28 DAY CYCLE)
     Route: 048
     Dates: start: 20190124

REACTIONS (10)
  - Renal impairment [Recovered/Resolved]
  - Hot flush [Unknown]
  - Fatigue [Recovered/Resolved]
  - Intentional product misuse [Unknown]
  - Cough [Recovered/Resolved]
  - Upper respiratory tract infection [Recovered/Resolved]
  - Chills [Recovered/Resolved]
  - Blood creatinine increased [Recovering/Resolving]
  - Rhinorrhoea [Unknown]
  - Nasopharyngitis [Recovered/Resolved]

NARRATIVE: CASE EVENT DATE: 2019
